FAERS Safety Report 14032385 (Version 3)
Quarter: 2020Q4

REPORT INFORMATION
  Report Type: Report from Study
  Country: DE (occurrence: JP)
  Receive Date: 20171002
  Receipt Date: 20201118
  Transmission Date: 20210113
  Serious: Yes (Other)
  Sender: FDA-Public Use
  Company Number: JP-ELI_LILLY_AND_COMPANY-JP201709011748

PATIENT
  Age: 62 Year
  Sex: Male

DRUGS (2)
  1. CETUXIMAB. [Suspect]
     Active Substance: CETUXIMAB
     Indication: HEAD AND NECK CANCER
     Dosage: 250 MG/M2, WEEKLY (1/W)
     Route: 041
     Dates: start: 20160922, end: 20161110
  2. HEPARINOID [Concomitant]
     Active Substance: CHONDROITIN SULFATE (BOVINE)
     Indication: PROPHYLAXIS
     Dosage: UNK

REACTIONS (13)
  - Alanine aminotransferase increased [Recovering/Resolving]
  - Radiation skin injury [Recovering/Resolving]
  - Pharyngeal inflammation [Recovering/Resolving]
  - Paronychia [Recovering/Resolving]
  - Aspartate aminotransferase increased [Recovering/Resolving]
  - Blood bilirubin increased [Recovered/Resolved]
  - Hyponatraemia [Recovering/Resolving]
  - Pneumonitis [Recovering/Resolving]
  - Hypomagnesaemia [Recovering/Resolving]
  - White blood cell count decreased [Recovering/Resolving]
  - Dermatitis acneiform [Recovering/Resolving]
  - Anaemia [Not Recovered/Not Resolved]
  - Stomatitis [Recovering/Resolving]

NARRATIVE: CASE EVENT DATE: 20160927
